FAERS Safety Report 7554149-5 (Version None)
Quarter: 2011Q2

REPORT INFORMATION
  Report Type: 
  Country: None (occurrence: None)
  Receive Date: 20110617
  Receipt Date: 20110614
  Transmission Date: 20111010
  Serious: No
  Sender: FDA-Public Use
  Company Number: US-PFIZER INC-2011131216

PATIENT
  Age: 41 Year
  Sex: Female

DRUGS (7)
  1. EFFEXOR [Suspect]
     Dosage: UNK
     Dates: start: 20100101, end: 20110501
  2. VITAMIN D [Concomitant]
     Dosage: UNK
  3. VITAMIN B-12 [Concomitant]
     Dosage: UNK
  4. MILNACIPRAN HYDROCHLORIDE [Suspect]
     Dosage: 50 MG, 2X/DAY
     Route: 048
     Dates: start: 20110501
  5. CALCIUM [Concomitant]
     Dosage: UNK
  6. DOXEPIN [Concomitant]
     Dosage: 10 MG, 2X/DAY
     Route: 048
  7. MILNACIPRAN HYDROCHLORIDE [Suspect]
     Indication: FIBROMYALGIA
     Dosage: UNK
     Dates: start: 20110501, end: 20110501

REACTIONS (4)
  - FEELING ABNORMAL [None]
  - EUPHORIC MOOD [None]
  - BACK PAIN [None]
  - DIZZINESS [None]
